FAERS Safety Report 5923078-2 (Version None)
Quarter: 2008Q4

REPORT INFORMATION
  Report Type: 
  Country: None (occurrence: None)
  Receive Date: 20081018
  Receipt Date: 20081007
  Transmission Date: 20090506
  Serious: Yes (Hospitalization)
  Sender: FDA-Public Use
  Company Number: FR-PFIZER INC-2008084791

PATIENT
  Sex: Female

DRUGS (5)
  1. ALDACTONE [Suspect]
     Route: 048
     Dates: start: 20080205, end: 20080206
  2. FORTUM [Suspect]
     Route: 042
     Dates: start: 20080105, end: 20080206
  3. TIENAM [Suspect]
     Dates: end: 20080223
  4. PLAVIX [Suspect]
     Dates: end: 20080223
  5. CIPROFLOXACIN [Suspect]
     Route: 048
     Dates: start: 20080105, end: 20080208

REACTIONS (3)
  - AGRANULOCYTOSIS [None]
  - CARDIAC FAILURE [None]
  - RASH [None]
